FAERS Safety Report 16291511 (Version 1)
Quarter: 2019Q2

REPORT INFORMATION
  Report Type: Spontaneous
  Country: GB (occurrence: GB)
  Receive Date: 20190509
  Receipt Date: 20190509
  Transmission Date: 20190711
  Serious: Yes (Other)
  Sender: FDA-Public Use
  Company Number: GB-TEVA-2019-GB-1046110

PATIENT
  Age: 73 Year
  Sex: Female
  Weight: 82.55 kg

DRUGS (3)
  1. AZITHROMYCIN DIHYDRATE. [Suspect]
     Active Substance: AZITHROMYCIN DIHYDRATE
     Indication: BRONCHIECTASIS
     Dosage: 750 MILLIGRAM FOR EVERY 1 WEEK
     Route: 048
     Dates: start: 20170920, end: 20190108
  2. BECONASE AQ [Concomitant]
     Active Substance: BECLOMETHASONE DIPROPIONATE MONOHYDRATE
  3. BUDESONIDE. [Concomitant]
     Active Substance: BUDESONIDE

REACTIONS (7)
  - Intestinal ulcer [Unknown]
  - Drug ineffective [Unknown]
  - Bronchitis [Unknown]
  - Diarrhoea [Unknown]
  - Hypersensitivity [Unknown]
  - Gastrointestinal pain [Unknown]
  - Product formulation issue [Unknown]

NARRATIVE: CASE EVENT DATE: 20180906
